FAERS Safety Report 21497359 (Version 1)
Quarter: 2022Q4

REPORT INFORMATION
  Report Type: Spontaneous
  Country: US (occurrence: None)
  Receive Date: 20221021
  Receipt Date: 20221021
  Transmission Date: 20230113
  Serious: Yes (Hospitalization)
  Sender: FDA-Public Use
  Company Number: None

PATIENT
  Sex: Female

DRUGS (2)
  1. HUMIRA [Suspect]
     Active Substance: ADALIMUMAB
     Indication: Polychondritis
     Dosage: OTHER QUANTITY : 40 MG/0.4ML ;?FREQUENCY : EVERY OTHER WEEK;?
     Route: 058
     Dates: start: 20220629
  2. HUMIRA [Suspect]
     Active Substance: ADALIMUMAB
     Dosage: OTHER QUANTITY : 1 SYRINGE;?FREQUENCY : EVERY OTHER WEEK;?
     Route: 058

REACTIONS (1)
  - Hospitalisation [None]
